FAERS Safety Report 5253318-7 (Version None)
Quarter: 2007Q1

REPORT INFORMATION
  Report Type: 
  Country: None (occurrence: None)
  Receive Date: 20070301
  Receipt Date: 20070219
  Transmission Date: 20070707
  Serious: Yes (Other)
  Sender: FDA-Public Use
  Company Number: PHMT2007CA00718

PATIENT
  Age: 41 Year
  Sex: Male

DRUGS (4)
  1. CLOZARIL [Suspect]
     Indication: SCHIZOPHRENIA
     Dosage: 50 MG QAM AND 350 MG QHS
     Route: 048
     Dates: start: 20060501
  2. FENOFIBRATE [Concomitant]
  3. IRON [Concomitant]
  4. EZETIMIBE [Concomitant]

REACTIONS (1)
  - FAECAL INCONTINENCE [None]
